FAERS Safety Report 9682465 (Version 1)
Quarter: 2013Q4

REPORT INFORMATION
  Report Type: Spontaneous
  Country: US (occurrence: US)
  Receive Date: 20131112
  Receipt Date: 20131112
  Transmission Date: 20140711
  Serious: No
  Sender: FDA-Public Use
  Company Number: US-009507513-1311USA003742

PATIENT
  Sex: Male

DRUGS (2)
  1. AZASITE [Suspect]
     Indication: DRY EYE
  2. AZASITE [Suspect]
     Indication: BLEPHARITIS

REACTIONS (2)
  - Dry eye [Unknown]
  - Drug dose omission [Unknown]
